FAERS Safety Report 12138140 (Version 1)
Quarter: 2016Q1

REPORT INFORMATION
  Report Type: Spontaneous
  Country: DK (occurrence: DK)
  Receive Date: 20160302
  Receipt Date: 20160302
  Transmission Date: 20160526
  Serious: Yes (Other)
  Sender: FDA-Public Use
  Company Number: DK-CELGENE-044-21880-14011868

PATIENT

DRUGS (5)
  1. DARATUMUMAB [Concomitant]
     Active Substance: DARATUMUMAB
     Dosage: 2-16
     Route: 065
  2. DEXAMETHASONE. [Concomitant]
     Active Substance: DEXAMETHASONE
     Indication: PLASMA CELL MYELOMA
     Route: 065
  3. DARATUMUMAB [Concomitant]
     Active Substance: DARATUMUMAB
     Indication: PLASMA CELL MYELOMA
     Dosage: 2-16
     Route: 065
  4. REVLIMID [Suspect]
     Active Substance: LENALIDOMIDE
     Indication: PLASMA CELL MYELOMA
     Dosage: 18.75 MILLIGRAM
     Route: 048
  5. DARATUMUMAB [Concomitant]
     Active Substance: DARATUMUMAB
     Dosage: 2-16
     Route: 065

REACTIONS (20)
  - Fatigue [Recovered/Resolved]
  - Rhinitis allergic [Recovered/Resolved]
  - Thrombocytopenia [Unknown]
  - Muscle spasms [Unknown]
  - Pyrexia [Unknown]
  - Plasma cell myeloma [Unknown]
  - Allergic oedema [Recovered/Resolved]
  - Nasal congestion [Recovered/Resolved]
  - Hypertension [Recovered/Resolved]
  - Adenocarcinoma gastric [Unknown]
  - Neutropenia [Unknown]
  - Anaemia [Unknown]
  - Diarrhoea [Unknown]
  - Cough [Unknown]
  - Nausea [Recovered/Resolved]
  - Infusion related reaction [Unknown]
  - Febrile neutropenia [Unknown]
  - Gastroenteritis [Unknown]
  - Dyspnoea [Recovered/Resolved]
  - Vomiting [Recovered/Resolved]
